FAERS Safety Report 11190769 (Version 1)
Quarter: 2015Q2

REPORT INFORMATION
  Report Type: Spontaneous
  Country: US (occurrence: US)
  Receive Date: 20150615
  Receipt Date: 20150615
  Transmission Date: 20150821
  Serious: Yes (Other)
  Sender: FDA-Public Use
  Company Number: US-PFIZER INC-2015196561

PATIENT
  Sex: Female
  Weight: 63.49 kg

DRUGS (3)
  1. LOVENOX [Concomitant]
     Active Substance: ENOXAPARIN SODIUM
     Dosage: UNK
  2. LYRICA [Suspect]
     Active Substance: PREGABALIN
     Indication: NEUROPATHY PERIPHERAL
     Dosage: 75 MG, 2X/DAY
  3. LYRICA [Suspect]
     Active Substance: PREGABALIN
     Indication: NEURALGIA
     Dosage: 75 MG, 1X/DAY

REACTIONS (9)
  - Dizziness [Recovered/Resolved]
  - Wrist fracture [Recovered/Resolved]
  - Disorientation [Recovered/Resolved]
  - Arrhythmia [Recovered/Resolved]
  - Face injury [Recovered/Resolved]
  - Fatigue [Recovered/Resolved]
  - Impaired driving ability [Recovered/Resolved]
  - Loss of consciousness [Recovered/Resolved]
  - Facial bones fracture [Recovered/Resolved]
